FAERS Safety Report 23849892 (Version 2)
Quarter: 2024Q2

REPORT INFORMATION
  Report Type: Spontaneous
  Country: US (occurrence: US)
  Receive Date: 20240513
  Receipt Date: 20240607
  Transmission Date: 20240715
  Serious: Yes (Hospitalization)
  Sender: FDA-Public Use
  Company Number: US-INCYTE CORPORATION-2024IN004969

PATIENT

DRUGS (1)
  1. JAKAFI [Suspect]
     Active Substance: RUXOLITINIB
     Indication: Acute lymphocytic leukaemia
     Dosage: 5 MILLIGRAM, BID
     Route: 048
     Dates: start: 202108

REACTIONS (2)
  - Viral infection [Unknown]
  - Off label use [Unknown]

NARRATIVE: CASE EVENT DATE: 20210801
